FAERS Safety Report 7040652-3 (Version None)
Quarter: 2010Q4

REPORT INFORMATION
  Report Type: 
  Country: None (occurrence: None)
  Receive Date: 20101013
  Receipt Date: 20101006
  Transmission Date: 20110411
  Serious: Yes (Hospitalization)
  Sender: FDA-Public Use
  Company Number: US-AMGEN-KDL443835

PATIENT
  Sex: Female

DRUGS (2)
  1. ENBREL [Suspect]
     Indication: RHEUMATOID ARTHRITIS
     Route: 058
  2. TREXALL [Concomitant]
     Route: 048

REACTIONS (3)
  - ANAEMIA [None]
  - ASTHMA [None]
  - RHEUMATOID ARTHRITIS [None]
